FAERS Safety Report 5943306-7 (Version None)
Quarter: 2008Q4

REPORT INFORMATION
  Report Type: 
  Country: None (occurrence: None)
  Receive Date: 20081106
  Receipt Date: 20081029
  Transmission Date: 20090506
  Serious: Yes (Other)
  Sender: FDA-Public Use
  Company Number: PHHY2008BR18840

PATIENT
  Age: 60 Year
  Sex: Female

DRUGS (3)
  1. EXFORGE [Suspect]
     Indication: HYPERTENSION
     Dosage: 160/5 MG, ONCE A DAY
     Route: 048
     Dates: start: 20030101, end: 20080819
  2. DIOVAN HCT [Concomitant]
     Dosage: 160/12.5 MG
     Dates: start: 20080819
  3. PURAN T4 [Concomitant]
     Indication: HYPOTHYROIDISM
     Dosage: 1 DF, QD
     Route: 048
     Dates: start: 20040101

REACTIONS (4)
  - ANGIOPATHY [None]
  - SCHAMBERG'S DISEASE [None]
  - SKIN DISCOLOURATION [None]
  - VASCULAR RUPTURE [None]
